FAERS Safety Report 8784930 (Version 1)
Quarter: 2012Q4

REPORT INFORMATION
  Report Type: Report from Study
  Country: CA (occurrence: CA)
  Receive Date: 20120914
  Receipt Date: 20120914
  Transmission Date: 20130627
  Serious: Yes (Other)
  Sender: FDA-Public Use
  Company Number: CA-JNJFOC-20120902364

PATIENT
  Age: 65 Year
  Sex: Female
  Weight: 85 kg

DRUGS (12)
  1. REMICADE [Suspect]
     Indication: CROHN^S DISEASE
     Route: 042
     Dates: start: 20110113
  2. ALTACE [Concomitant]
     Route: 065
  3. ATIVAN [Concomitant]
     Route: 065
  4. PENTASA [Concomitant]
     Route: 065
  5. WARFARIN [Concomitant]
     Route: 065
  6. LOSEC [Concomitant]
     Route: 065
  7. ENTEROCORT [Concomitant]
     Route: 065
  8. IMODIUM [Concomitant]
     Route: 065
  9. CODEINE [Concomitant]
     Route: 065
  10. AMITRIPTYLINE [Concomitant]
     Route: 065
  11. LASIX [Concomitant]
     Route: 065
  12. METOPROLOL [Concomitant]
     Route: 065

REACTIONS (1)
  - Tachyarrhythmia [Recovering/Resolving]
